FAERS Safety Report 14815607 (Version 1)
Quarter: 2018Q2

REPORT INFORMATION
  Report Type: Spontaneous
  Country: US (occurrence: US)
  Receive Date: 20180417
  Receipt Date: 20180417
  Transmission Date: 20180711
  Serious: Yes (Other)
  Sender: FDA-Public Use
  Company Number: None

PATIENT
  Age: 24 Year
  Sex: Female
  Weight: 85.5 kg

DRUGS (1)
  1. NEXPLANON [Suspect]
     Active Substance: ETONOGESTREL
     Indication: CONTRACEPTION

REACTIONS (10)
  - Anxiety [None]
  - Self esteem inflated [None]
  - Depression [None]
  - Weight increased [None]
  - Mental disorder [None]
  - Suicidal ideation [None]
  - Feeling abnormal [None]
  - Anger [None]
  - Procedural pain [None]
  - Educational problem [None]

NARRATIVE: CASE EVENT DATE: 20170209
